FAERS Safety Report 5143927-8 (Version None)
Quarter: 2006Q4

REPORT INFORMATION
  Report Type: 
  Country: None (occurrence: None)
  Receive Date: 20061106
  Receipt Date: 20061024
  Transmission Date: 20070319
  Serious: Yes (Hospitalization)
  Sender: FDA-Public Use
  Company Number: PHBS2006ES16504

PATIENT
  Age: 59 Year
  Sex: Male

DRUGS (3)
  1. MELPHALAN [Concomitant]
     Indication: MULTIPLE MYELOMA
     Route: 065
     Dates: start: 19830101, end: 20040701
  2. PREDNISONE TAB [Concomitant]
     Indication: MULTIPLE MYELOMA
     Route: 065
     Dates: start: 19830101, end: 20040701
  3. ZOMETA [Suspect]
     Indication: MULTIPLE MYELOMA
     Dosage: 4 MG, UNK
     Route: 042
     Dates: start: 20010101, end: 20040701

REACTIONS (2)
  - OSTEONECROSIS [None]
  - PLASTIC SURGERY [None]
